FAERS Safety Report 10892095 (Version 2)
Quarter: 2015Q2

REPORT INFORMATION
  Report Type: Spontaneous
  Country: NO (occurrence: NO)
  Receive Date: 20150306
  Receipt Date: 20150629
  Transmission Date: 20150821
  Serious: Yes (Hospitalization, Other)
  Sender: FDA-Public Use
  Company Number: NO-JNJFOC-20150219317

PATIENT
  Age: 71 Year
  Sex: Male

DRUGS (3)
  1. MAREVAN [Suspect]
     Active Substance: WARFARIN SODIUM
     Indication: PULMONARY EMBOLISM
     Route: 065
  2. XARELTO [Suspect]
     Active Substance: RIVAROXABAN
     Indication: PULMONARY EMBOLISM
     Route: 048
     Dates: start: 20150212
  3. XARELTO [Suspect]
     Active Substance: RIVAROXABAN
     Indication: EMBOLISM VENOUS
     Route: 048
     Dates: start: 20150212

REACTIONS (5)
  - Dyspnoea [Recovering/Resolving]
  - Drug ineffective [Unknown]
  - Chest pain [Unknown]
  - Pulmonary embolism [Unknown]
  - Treatment failure [Unknown]

NARRATIVE: CASE EVENT DATE: 20150219
